FAERS Safety Report 20291355 (Version 1)
Quarter: 2022Q1

REPORT INFORMATION
  Report Type: Spontaneous
  Country: US (occurrence: None)
  Receive Date: 20220103
  Receipt Date: 20220103
  Transmission Date: 20220423
  Serious: Yes (Life-Threatening)
  Sender: FDA-Public Use
  Company Number: None

PATIENT
  Sex: Male
  Weight: 79.83 kg

DRUGS (3)
  1. PHENYTOIN [Suspect]
     Active Substance: PHENYTOIN
  2. PHENYTOIN [Concomitant]
     Active Substance: PHENYTOIN
     Dates: start: 20030101
  3. ph eny?toi n [Concomitant]
     Dates: start: 20190101

REACTIONS (2)
  - Product substitution issue [None]
  - Seizure [None]
